FAERS Safety Report 26118719 (Version 1)
Quarter: 2025Q4

REPORT INFORMATION
  Report Type: Spontaneous
  Country: US (occurrence: US)
  Receive Date: 20251203
  Receipt Date: 20251203
  Transmission Date: 20260117
  Serious: No
  Sender: BOEHRINGER INGELHEIM
  Company Number: US-BoehringerIngelheim-2025-BI-112026

PATIENT
  Age: 85 Year
  Sex: Male

DRUGS (2)
  1. JASCAYD [Suspect]
     Active Substance: NERANDOMILAST
     Indication: Idiopathic pulmonary fibrosis
     Dates: start: 2025
  2. PIRFENIDONE [Concomitant]
     Active Substance: PIRFENIDONE
     Indication: Product used for unknown indication

REACTIONS (1)
  - Flushing [Not Recovered/Not Resolved]

NARRATIVE: CASE EVENT DATE: 20250101
